FAERS Safety Report 9011215 (Version 1)
Quarter: 2013Q1

REPORT INFORMATION
  Report Type: Report from Study
  Country: US (occurrence: US)
  Receive Date: 20130109
  Receipt Date: 20130109
  Transmission Date: 20140127
  Serious: Yes (Hospitalization)
  Sender: FDA-Public Use
  Company Number: US-NICOBRDEVP-2012-23134

PATIENT
  Age: 63 Year
  Sex: Female

DRUGS (17)
  1. METFORMIN HYDROCHLORIDE (WATSON LABORATORIES) [Suspect]
     Indication: DIABETES MELLITUS
     Dosage: 850 MG 2/1 DAY
     Route: 048
  2. SAXAGLIPTIN [Suspect]
     Indication: TYPE 2 DIABETES MELLITUS
     Dosage: ^5 MILLIGRAM 1 DAY^
     Route: 048
     Dates: start: 20110114
  3. HUMALOG [Suspect]
     Indication: DIABETES MELLITUS
     Dosage: 30 MICROMOLE DAILY
     Route: 058
  4. LEVEMIR [Suspect]
     Indication: DIABETES MELLITUS
     Dosage: 1 DOSAGE FORM 1 DAY
     Route: 058
  5. LANTUS [Suspect]
     Indication: DIABETES MELLITUS
     Dosage: 40 INTERNATIONAL UNIT
     Route: 065
  6. PLACEBO [Suspect]
     Indication: TYPE 2 DIABETES MELLITUS
     Dosage: 1 DAY
     Route: 048
     Dates: start: 20110114
  7. ASPIRIN [Suspect]
     Indication: CARDIOVASCULAR DISORDER
     Dosage: 81 MG 1 DAY
     Route: 048
  8. LOSARTAN POTASSIUM (WATSON LABORATORIES) [Suspect]
     Indication: CARDIAC FAILURE CHRONIC
     Dosage: 100 MG 1 DAY
     Route: 048
  9. FUROSEMIDE (WATSON LABORATORIES) [Suspect]
     Indication: CARDIAC FAILURE CHRONIC
     Dosage: 40 MG DAILY
     Route: 048
  10. SPIRONOLACTONE [Concomitant]
     Indication: PRODUCT USED FOR UNKNOWN INDICATION
     Dosage: UNK
     Route: 065
  11. AMLODIPINE [Concomitant]
     Indication: PRODUCT USED FOR UNKNOWN INDICATION
     Dosage: UNK
     Route: 065
  12. FLUVOXAMINE [Concomitant]
     Indication: PRODUCT USED FOR UNKNOWN INDICATION
     Dosage: UNK
     Route: 065
  13. CARVEDILOL [Concomitant]
     Indication: PRODUCT USED FOR UNKNOWN INDICATION
     Dosage: UNK
     Route: 065
  14. GABAPENTIN [Concomitant]
     Indication: PRODUCT USED FOR UNKNOWN INDICATION
     Dosage: UNK
     Route: 065
  15. PRAVACHOL [Concomitant]
     Indication: PRODUCT USED FOR UNKNOWN INDICATION
     Dosage: UNK
     Route: 065
  16. RANITIDINE [Concomitant]
     Indication: PRODUCT USED FOR UNKNOWN INDICATION
     Dosage: UNK
     Route: 065
  17. MELOXICAM [Concomitant]
     Indication: PRODUCT USED FOR UNKNOWN INDICATION
     Dosage: UNK
     Route: 065

REACTIONS (2)
  - Diabetic ketoacidosis [Recovered/Resolved]
  - Renal impairment [Recovered/Resolved]
